FAERS Safety Report 4556483-X (Version None)
Quarter: 2005Q1

REPORT INFORMATION
  Report Type: 
  Country: None (occurrence: None)
  Receive Date: 20050114
  Receipt Date: 20050104
  Transmission Date: 20050727
  Serious: Yes (Hospitalization)
  Sender: FDA-Public Use
  Company Number: HQWYE394905JAN05

PATIENT
  Sex: Female

DRUGS (1)
  1. EFFEXOR XR [Suspect]
     Dosage: 75-150 MG DAILY, ORAL
     Route: 048

REACTIONS (3)
  - AGGRESSION [None]
  - HOSTILITY [None]
  - PSYCHOTIC DISORDER [None]
